APPROVED DRUG PRODUCT: PREGABALIN
Active Ingredient: PREGABALIN
Strength: 330MG
Dosage Form/Route: TABLET, EXTENDED RELEASE;ORAL
Application: A217857 | Product #001 | TE Code: AB
Applicant: AIPING PHARMACEUTICAL INC
Approved: Jan 28, 2025 | RLD: No | RS: No | Type: RX